FAERS Safety Report 4864918-8 (Version None)
Quarter: 2005Q4

REPORT INFORMATION
  Report Type: 
  Country: None (occurrence: None)
  Receive Date: 20051201
  Receipt Date: 20050729
  Transmission Date: 20060501
  Serious: No
  Sender: FDA-Public Use
  Company Number: 2005PV000711

PATIENT
  Age: 68 Year
  Sex: Female
  Weight: 159.6662 kg

DRUGS (23)
  1. BYETTA [Suspect]
     Indication: DIABETES MELLITUS NON-INSULIN-DEPENDENT
     Dosage: 5 MCG; BID; SC
     Route: 058
     Dates: start: 20050706
  2. ACTOS [Concomitant]
  3. LANTUS [Concomitant]
  4. FOSAMAX [Concomitant]
  5. ACCUPRIL [Concomitant]
  6. ALDACTONE [Concomitant]
  7. DURAGESIC-100 [Concomitant]
  8. IMDUR [Concomitant]
  9. K-DUR 10 [Concomitant]
  10. LASIX [Concomitant]
  11. NEURONTIN [Concomitant]
  12. NITROSTAT [Concomitant]
  13. PAXIL [Concomitant]
  14. PLAVIX [Concomitant]
  15. PROTONIX [Concomitant]
  16. TOPROL-XL [Concomitant]
  17. VYTORIN [Concomitant]
  18. ZAROXOLYN [Concomitant]
  19. ASPIRIN [Concomitant]
  20. BENADRYL [Concomitant]
  21. CALTRATE [Concomitant]
  22. CENTRUM SILVER [Concomitant]
  23. FERROUS SULFATE TAB [Concomitant]

REACTIONS (1)
  - WEIGHT DECREASED [None]
